FAERS Safety Report 24182524 (Version 1)
Quarter: 2024Q3

REPORT INFORMATION
  Report Type: Spontaneous
  Country: CH (occurrence: CH)
  Receive Date: 20240807
  Receipt Date: 20240807
  Transmission Date: 20241017
  Serious: Yes (Other)
  Sender: UCB
  Company Number: None

PATIENT
  Age: 29 Year
  Sex: Female

DRUGS (12)
  1. CIMZIA [Suspect]
     Active Substance: CERTOLIZUMAB PEGOL
     Indication: Sjogren^s syndrome
     Dosage: EVERY 2 WEEKS
     Route: 058
     Dates: start: 202307, end: 20240227
  2. CIMZIA [Suspect]
     Active Substance: CERTOLIZUMAB PEGOL
     Indication: Off label use
  3. KEVZARA [Suspect]
     Active Substance: SARILUMAB
     Indication: Sjogren^s syndrome
     Dosage: 200 MILLIGRAM, EV 2 WEEKS(QOW)
     Route: 058
     Dates: start: 2021, end: 20230622
  4. ARCOXIA [Suspect]
     Active Substance: ETORICOXIB
     Indication: Product used for unknown indication
     Dosage: 30 MILLIGRAM MAX 2X/D AS NEEDED, STOPPED IN FIRST TRIMESTER
     Route: 058
     Dates: end: 2023
  5. PREDNISONE [Suspect]
     Active Substance: PREDNISONE
     Indication: Product used for unknown indication
     Dosage: 15 MILLIGRAM IN THE MORNING AS NEEDED
     Dates: end: 202307
  6. PREDNISONE [Suspect]
     Active Substance: PREDNISONE
     Dosage: 10-20 MILLIGRAM PER DAY
     Dates: start: 202307, end: 20231009
  7. PREDNISONE [Suspect]
     Active Substance: PREDNISONE
     Dosage: 5-10 MILLIGRAM PER DAY
     Dates: start: 20231010
  8. ASPIRIN [Suspect]
     Active Substance: ASPIRIN
     Indication: Product used for unknown indication
     Dosage: 100 MILLIGRAM PER DAY
     Dates: start: 20230913, end: 20240223
  9. ENOXAPARIN SODIUM [Suspect]
     Active Substance: ENOXAPARIN SODIUM
     Indication: Prophylaxis
     Dosage: 40 MILLIGRAM PER DAY
     Route: 058
     Dates: start: 20230928, end: 20240225
  10. ANDREAFOL [Concomitant]
     Indication: Product used for unknown indication
     Dosage: 0.4 MILLIGRAM, ONCE DAILY (QD) IN THE EVENING
  11. FERROUS SULFATE [Concomitant]
     Active Substance: FERROUS SULFATE
     Indication: Product used for unknown indication
     Dosage: 80 MILLIGRAM PER DAY
  12. TETRAHYDROZOLINE HYDROCHLORIDE [Concomitant]
     Active Substance: TETRAHYDROZOLINE HYDROCHLORIDE
     Indication: Product used for unknown indication
     Dosage: UNK, AS NEEDED (PRN)
     Route: 047

REACTIONS (7)
  - Polyhydramnios [Recovered/Resolved]
  - Placental insufficiency [Recovered/Resolved]
  - COVID-19 [Recovered/Resolved]
  - Caesarean section [Recovered/Resolved]
  - Unwanted pregnancy [Unknown]
  - Maternal exposure during pregnancy [Unknown]
  - Off label use [Unknown]

NARRATIVE: CASE EVENT DATE: 20230101
